FAERS Safety Report 5648606-6 (Version None)
Quarter: 2008Q1

REPORT INFORMATION
  Report Type: 
  Country: None (occurrence: None)
  Receive Date: 20080303
  Receipt Date: 20080303
  Transmission Date: 20080703
  Serious: No
  Sender: FDA-Public Use
  Company Number: None

PATIENT
  Age: 59 Year
  Sex: Female
  Weight: 76.2043 kg

DRUGS (1)
  1. ACIPHEX [Suspect]
     Indication: DYSPEPSIA
     Dosage: 10MG ONE A DAY
     Dates: start: 20071123, end: 20071125

REACTIONS (3)
  - AGEUSIA [None]
  - DYSPNOEA [None]
  - SWOLLEN TONGUE [None]
